FAERS Safety Report 11170326 (Version 1)
Quarter: 2015Q2

REPORT INFORMATION
  Report Type: Spontaneous
  Country: US (occurrence: US)
  Receive Date: 20150608
  Receipt Date: 20150608
  Transmission Date: 20150821
  Serious: Yes (Hospitalization)
  Sender: FDA-Public Use
  Company Number: US-ROCHE-1533796

PATIENT
  Sex: Male

DRUGS (2)
  1. XELODA [Suspect]
     Active Substance: CAPECITABINE
     Indication: NEOPLASM MALIGNANT
     Dosage: 500 MG 3 DF B.I.D. 14 DAYS ON /7 OFF
     Route: 048
     Dates: start: 20140808
  2. XELODA [Suspect]
     Active Substance: CAPECITABINE
     Dosage: DOSE REDUCED
     Route: 048
     Dates: end: 20150527

REACTIONS (5)
  - Infection [Not Recovered/Not Resolved]
  - Cardiac disorder [Unknown]
  - Pain in extremity [Unknown]
  - Skin exfoliation [Unknown]
  - Erythema [Recovered/Resolved]
